FAERS Safety Report 8537079-1 (Version None)
Quarter: 2012Q3

REPORT INFORMATION
  Report Type: 
  Country: None (occurrence: None)
  Receive Date: 20120725
  Receipt Date: 20120716
  Transmission Date: 20120928
  Serious: Yes (Other)
  Sender: FDA-Public Use
  Company Number: NL-CELGENEUS-114-21880-12051163

PATIENT
  Sex: Male
  Weight: 79 kg

DRUGS (2)
  1. REVLIMID [Suspect]
     Indication: MULTIPLE MYELOMA
     Route: 048
     Dates: start: 20101103
  2. REVLIMID [Suspect]
     Route: 048
     Dates: start: 20110309, end: 20110401

REACTIONS (1)
  - SQUAMOUS CELL CARCINOMA OF SKIN [None]
